FAERS Safety Report 23235425 (Version 4)
Quarter: 2024Q4

REPORT INFORMATION
  Report Type: Spontaneous
  Country: US (occurrence: US)
  Receive Date: 20231128
  Receipt Date: 20241126
  Transmission Date: 20250114
  Serious: Yes (Other)
  Sender: PFIZER
  Company Number: US-PFIZER INC-PV202300012814

PATIENT
  Age: 77 Year
  Sex: Male

DRUGS (1)
  1. TIKOSYN [Suspect]
     Active Substance: DOFETILIDE
     Dosage: 375 UG, 2X/DAY (EVERY 12HRS( TAKE 3 CAPSULES IN THE MORNING AND 3 CAPSULES IN THE EVENING)
     Route: 048
     Dates: start: 20230125

REACTIONS (1)
  - Macular degeneration [Unknown]
